FAERS Safety Report 22185732 (Version 1)
Quarter: 2023Q2

REPORT INFORMATION
  Report Type: Spontaneous
  Country: US (occurrence: None)
  Receive Date: 20230406
  Receipt Date: 20230406
  Transmission Date: 20230722
  Serious: Yes (Life-Threatening, Other)
  Sender: FDA-Public Use
  Company Number: None

PATIENT
  Age: 56 Year
  Sex: Female
  Weight: 68.49 kg

DRUGS (4)
  1. CEFTRIAXONE SODIUM [Suspect]
     Active Substance: CEFTRIAXONE SODIUM
     Indication: Pharyngitis
     Dosage: FREQUENCY : ONCE;?
     Route: 030
     Dates: start: 20230324, end: 20230324
  2. XYLOCAINE MPF [Suspect]
     Active Substance: LIDOCAINE HYDROCHLORIDE
     Indication: Product used for unknown indication
     Dosage: FREQUENCY : ONCE;?
     Route: 030
     Dates: start: 20230324, end: 20230324
  3. DEXAMETHASONE SODIUM PHOSPHATE [Concomitant]
     Active Substance: DEXAMETHASONE SODIUM PHOSPHATE
  4. METHYLPREDNSISLLONE ACETATE [Concomitant]

REACTIONS (3)
  - Anaphylactic reaction [None]
  - Seizure [None]
  - Injection related reaction [None]

NARRATIVE: CASE EVENT DATE: 20230324
